FAERS Safety Report 12105611 (Version 1)
Quarter: 2016Q1

REPORT INFORMATION
  Report Type: Spontaneous
  Country: US (occurrence: US)
  Receive Date: 20160223
  Receipt Date: 20160223
  Transmission Date: 20160526
  Serious: No
  Sender: FDA-Public Use
  Company Number: US-TARO-2015TAR01097

PATIENT
  Sex: Female

DRUGS (1)
  1. KEVEYIS [Suspect]
     Active Substance: DICHLORPHENAMIDE

REACTIONS (3)
  - Feeling abnormal [Unknown]
  - Confusional state [Unknown]
  - Cognitive disorder [Unknown]
